FAERS Safety Report 6729171-9 (Version None)
Quarter: 2010Q2

REPORT INFORMATION
  Report Type: 
  Country: None (occurrence: None)
  Receive Date: 20100517
  Receipt Date: 20100414
  Transmission Date: 20101027
  Serious: No
  Sender: FDA-Public Use
  Company Number: US-ABBOTT-10P-163-0639477-00

PATIENT
  Sex: Female
  Weight: 105.78 kg

DRUGS (4)
  1. SIMCOR [Suspect]
     Indication: BLOOD CHOLESTEROL INCREASED
     Dates: start: 20100412, end: 20100412
  2. SYNTHROID [Concomitant]
     Indication: HYPOTHYROIDISM
  3. BENICAR HCT [Concomitant]
     Indication: HYPERTENSION
  4. ESTRADIOL [Concomitant]
     Indication: DRUG USE FOR UNKNOWN INDICATION

REACTIONS (4)
  - DIARRHOEA [None]
  - GENERALISED ERYTHEMA [None]
  - NERVOUSNESS [None]
  - VOMITING [None]
